FAERS Safety Report 20684640 (Version 1)
Quarter: 2022Q2

REPORT INFORMATION
  Report Type: Report from Study
  Country: US (occurrence: US)
  Receive Date: 20220407
  Receipt Date: 20220407
  Transmission Date: 20220721
  Serious: Yes (Death, Hospitalization, Other)
  Sender: FDA-Public Use
  Company Number: US-PFIZER INC-202200481374

PATIENT
  Age: 78 Year
  Sex: Female
  Weight: 90.703 kg

DRUGS (5)
  1. DOBUTAMINE HYDROCHLORIDE [Suspect]
     Active Substance: DOBUTAMINE HYDROCHLORIDE
     Indication: Product used for unknown indication
     Dosage: UNK
  2. REMODULIN [Suspect]
     Active Substance: TREPROSTINIL
     Indication: Pulmonary arterial hypertension
     Dosage: 5.0 MG/ML
     Route: 058
     Dates: start: 20210930
  3. REMODULIN [Suspect]
     Active Substance: TREPROSTINIL
     Dosage: 0.020 UG/KG
     Route: 058
     Dates: start: 2021, end: 2021
  4. REMODULIN [Suspect]
     Active Substance: TREPROSTINIL
     Dosage: 0.028 UG/KG
     Route: 058
     Dates: start: 2021, end: 2021
  5. REMODULIN [Suspect]
     Active Substance: TREPROSTINIL
     Dosage: UNK
     Route: 058
     Dates: start: 2021, end: 20211027

REACTIONS (18)
  - Cardio-respiratory arrest [Fatal]
  - Cardiac failure [Fatal]
  - Atrial fibrillation [Unknown]
  - Thrombosis [Unknown]
  - Device dislocation [Unknown]
  - Fatigue [Unknown]
  - Dyspnoea [Unknown]
  - Nausea [Unknown]
  - Gastrooesophageal reflux disease [Unknown]
  - Heart rate irregular [Recovered/Resolved]
  - Oedema peripheral [Unknown]
  - Hypotension [Unknown]
  - Skin induration [Unknown]
  - Pain of skin [Unknown]
  - Diarrhoea [Unknown]
  - Generalised oedema [Unknown]
  - Decreased appetite [Unknown]
  - Asthenia [Unknown]

NARRATIVE: CASE EVENT DATE: 20210101
